FAERS Safety Report 5585046-2 (Version None)
Quarter: 2008Q1

REPORT INFORMATION
  Report Type: 
  Country: None (occurrence: None)
  Receive Date: 20080109
  Receipt Date: 20071225
  Transmission Date: 20080703
  Serious: Yes (Hospitalization)
  Sender: FDA-Public Use
  Company Number: JP-BRISTOL-MYERS SQUIBB COMPANY-14031173

PATIENT
  Age: 35 Year
  Sex: Male

DRUGS (2)
  1. BARACLUDE [Suspect]
     Indication: HEPATITIS FULMINANT
     Route: 048
  2. ADRENAL CORTICAL EXTRACT [Suspect]
     Indication: HYPERTENSION
     Route: 065

REACTIONS (1)
  - LEUKOENCEPHALOPATHY [None]
